FAERS Safety Report 11630744 (Version 1)
Quarter: 2015Q4

REPORT INFORMATION
  Report Type: Spontaneous
  Country: US (occurrence: US)
  Receive Date: 20151014
  Receipt Date: 20151014
  Transmission Date: 20160304
  Serious: No
  Sender: FDA-Public Use
  Company Number: US-BAYER-2015-438254

PATIENT
  Sex: Female

DRUGS (1)
  1. CHILDREN CLARITIN ALLERGY [Suspect]
     Active Substance: LORATADINE
     Indication: ALLERGY TO ANIMAL
     Dosage: UNK
     Route: 048

REACTIONS (2)
  - Therapeutic response unexpected [None]
  - Product use issue [None]
